FAERS Safety Report 18374160 (Version 1)
Quarter: 2020Q4

REPORT INFORMATION
  Report Type: Report from Study
  Country: US (occurrence: US)
  Receive Date: 20201012
  Receipt Date: 20201012
  Transmission Date: 20210114
  Serious: Yes (Hospitalization)
  Sender: FDA-Public Use
  Company Number: US-TEVA-2019-US-1076139

PATIENT
  Age: 60 Year
  Sex: Female

DRUGS (22)
  1. LIDOCAINE PATCH 5% [Concomitant]
     Active Substance: LIDOCAINE
     Indication: PAIN
     Dosage: USE AS NEEDED FOR PAIN
  2. AMPYRA 10MG TABLET [Concomitant]
     Dosage: 1 TABLET TWICE A DAY
  3. BACLOFEN. [Concomitant]
     Active Substance: BACLOFEN
     Dosage: TAKE 1 TABLET AT BEDTIME
  4. PRILOSEC [Concomitant]
     Active Substance: OMEPRAZOLE MAGNESIUM
     Dosage: 40 MILLIGRAM DAILY;
  5. SPRING VALLEY [Concomitant]
     Dosage: I SOFT GEL 3 TIMES DAILY
  6. COPAXONE [Suspect]
     Active Substance: GLATIRAMER ACETATE
     Indication: MULTIPLE SCLEROSIS
     Dates: start: 20181026
  7. KIRKLAND [Concomitant]
     Dosage: 1 TABLET 2 TIMES DAILY
  8. EQUATE [Concomitant]
     Indication: FAECES SOFT
     Dosage: 300 MILLIGRAM DAILY; SOFT GEL
  9. COPAXONE [Suspect]
     Active Substance: GLATIRAMER ACETATE
     Dosage: 20 MILLIGRAM DAILY;
     Dates: start: 20130801, end: 201809
  10. PAXIL [Concomitant]
     Active Substance: PAROXETINE HYDROCHLORIDE
     Dosage: 10 MILLIGRAM DAILY;
  11. NEXIUM 40MG CAPSULE [Concomitant]
  12. NATURES BOUNTRY [Concomitant]
     Dosage: PROBIOTIC 10?TAKE 1 DAILY
  13. NATURES MADE [Concomitant]
     Dosage: 5000 MICROGRAM DAILY;
  14. ZYRTEC ALLERGY [Concomitant]
     Active Substance: CETIRIZINE HYDROCHLORIDE
     Dosage: 10 MILLIGRAM DAILY;
  15. SPRING VALUE [Concomitant]
     Dosage: 450 MILLIGRAM DAILY;
  16. GLATIRAMER ACETATE. [Suspect]
     Active Substance: GLATIRAMER ACETATE
  17. DICLOMINE HCL [Concomitant]
     Dosage: 20 MILLIGRAM DAILY;
  18. NATURE MADE [Concomitant]
     Dosage: 180 MG, TAKE 1 DAILY
  19. ARICEPT 10MG TABLET [Concomitant]
     Dosage: 10 MILLIGRAM DAILY; TAKE 1 AT BED TIME
  20. VOLTAREN GEL 100MG 1% [Concomitant]
     Dosage: APPLY AS NEEDED
  21. XOLAIR INJECTION 300MG [Concomitant]
     Dates: start: 20140801
  22. KIRKLAND [Concomitant]
     Dosage: TAKE 1 TWO TIMES A DAY

REACTIONS (12)
  - Feeling abnormal [Not Recovered/Not Resolved]
  - Dyspnoea [Not Recovered/Not Resolved]
  - Product substitution issue [Unknown]
  - Chest pain [Recovering/Resolving]
  - Lipoatrophy [Unknown]
  - Mental impairment [Recovering/Resolving]
  - Palpitations [Not Recovered/Not Resolved]
  - Multiple sclerosis relapse [Unknown]
  - Cerebrovascular accident [Unknown]
  - Gait disturbance [Unknown]
  - Pain in extremity [Recovering/Resolving]
  - Injection site bruising [Unknown]

NARRATIVE: CASE EVENT DATE: 201809
